FAERS Safety Report 4711573-3 (Version None)
Quarter: 2005Q3

REPORT INFORMATION
  Report Type: 
  Country: None (occurrence: None)
  Receive Date: 20050708
  Receipt Date: 20050708
  Transmission Date: 20060218
  Serious: Yes (Other)
  Sender: FDA-Public Use
  Company Number: None

PATIENT
  Age: 70 Year
  Sex: Male
  Weight: 68.0396 kg

DRUGS (2)
  1. AREDIA [Suspect]
     Indication: CARCINOID TUMOUR
     Dosage: 90 MG MONTHLY IV
     Route: 042
     Dates: start: 20010910, end: 20020307
  2. ZOMETA [Suspect]
     Dosage: 4 MG Q 28 DAYS IV
     Route: 042
     Dates: start: 20030306, end: 20031108

REACTIONS (3)
  - IMPAIRED HEALING [None]
  - JAW DISORDER [None]
  - OSTEONECROSIS [None]
